FAERS Safety Report 25975452 (Version 1)
Quarter: 2025Q4

REPORT INFORMATION
  Report Type: Report from Study
  Country: US (occurrence: US)
  Receive Date: 20251029
  Receipt Date: 20251029
  Transmission Date: 20260118
  Serious: Yes (Other)
  Sender: NOVARTIS
  Company Number: US-002147023-NVSC2025US007578

PATIENT
  Age: 68 Year
  Sex: Female

DRUGS (2)
  1. SCEMBLIX [Suspect]
     Active Substance: ASCIMINIB HYDROCHLORIDE
     Indication: Product used for unknown indication
     Dosage: UNK
     Route: 065
  2. SCEMBLIX [Suspect]
     Active Substance: ASCIMINIB HYDROCHLORIDE
     Dosage: 20 MG
     Route: 065

REACTIONS (15)
  - Pancreatitis [Unknown]
  - Lipase increased [Unknown]
  - Cardiotoxicity [Unknown]
  - Arrhythmia [Unknown]
  - Pancreatic toxicity [Unknown]
  - Gastrointestinal toxicity [Unknown]
  - Cataract [Unknown]
  - Influenza [Not Recovered/Not Resolved]
  - Vomiting [Unknown]
  - Nausea [Unknown]
  - Eating disorder [Unknown]
  - Thyroid disorder [Unknown]
  - Periorbital swelling [Unknown]
  - Pancreatic disorder [Unknown]
  - Blood alkaline phosphatase increased [Not Recovered/Not Resolved]
